FAERS Safety Report 21707713 (Version 1)
Quarter: 2022Q4

REPORT INFORMATION
  Report Type: Spontaneous
  Country: DE (occurrence: DE)
  Receive Date: 20221209
  Receipt Date: 20221209
  Transmission Date: 20230113
  Serious: Yes (Other)
  Sender: FDA-Public Use
  Company Number: DE-MYLANLABS-2022M1135966

PATIENT
  Age: 6 Year
  Sex: Female

DRUGS (22)
  1. LEVETIRACETAM [Suspect]
     Active Substance: LEVETIRACETAM
     Indication: Malignant atrophic papulosis
     Dosage: 40 MILLIGRAM/KILOGRAM, QD
     Route: 065
  2. LEVETIRACETAM [Suspect]
     Active Substance: LEVETIRACETAM
     Indication: Nervous system disorder
  3. HYDROXYCHLOROQUINE [Suspect]
     Active Substance: HYDROXYCHLOROQUINE
     Indication: Malignant atrophic papulosis
     Dosage: 4 MILLIGRAM/KILOGRAM, QD (100 MG/DAY)
     Route: 048
  4. HYDROXYCHLOROQUINE [Suspect]
     Active Substance: HYDROXYCHLOROQUINE
     Indication: Nervous system disorder
  5. CYCLOPHOSPHAMIDE [Suspect]
     Active Substance: CYCLOPHOSPHAMIDE
     Indication: Malignant atrophic papulosis
     Dosage: 25 MILLIGRAM/SQ. METER, QD
     Route: 065
  6. CYCLOPHOSPHAMIDE [Suspect]
     Active Substance: CYCLOPHOSPHAMIDE
     Indication: Nervous system disorder
  7. BARICITINIB [Suspect]
     Active Substance: BARICITINIB
     Indication: Malignant atrophic papulosis
     Dosage: 0.025 MILLIGRAM/KILOGRAM, QD (0.5 MG/DAY)
     Route: 048
  8. BARICITINIB [Suspect]
     Active Substance: BARICITINIB
     Indication: Nervous system disorder
     Dosage: 0.4 MILLIGRAM/KILOGRAM, QD
     Route: 048
  9. METHYLPREDNISOLONE [Suspect]
     Active Substance: METHYLPREDNISOLONE
     Indication: Malignant atrophic papulosis
     Dosage: 30 MILLIGRAM/KILOGRAM, QD
     Route: 065
  10. METHYLPREDNISOLONE [Suspect]
     Active Substance: METHYLPREDNISOLONE
     Indication: Nervous system disorder
  11. IMMUNE GLOBULIN NOS [Suspect]
     Active Substance: IMMUNE GLOBULIN NOS
     Indication: Malignant atrophic papulosis
     Dosage: 2 MILLIGRAM/KILOGRAM, CYCLE (ADMINISTERED 1 CYCLE)
     Route: 042
  12. IMMUNE GLOBULIN NOS [Suspect]
     Active Substance: IMMUNE GLOBULIN NOS
     Indication: Nervous system disorder
  13. RITUXIMAB [Suspect]
     Active Substance: RITUXIMAB
     Indication: Malignant atrophic papulosis
     Dosage: 375 MILLIGRAM/SQ. METER (ADMINISTERED TWO DOSES)
     Route: 065
  14. RITUXIMAB [Suspect]
     Active Substance: RITUXIMAB
     Indication: Nervous system disorder
  15. TOCILIZUMAB [Suspect]
     Active Substance: TOCILIZUMAB
     Indication: Malignant atrophic papulosis
     Dosage: 200 MILLIGRAM, Q2W (ADMINISTERED BETWEEN AGE 8 AND 9 YEARS.)
     Route: 065
  16. TOCILIZUMAB [Suspect]
     Active Substance: TOCILIZUMAB
     Indication: Nervous system disorder
  17. ASPIRIN [Suspect]
     Active Substance: ASPIRIN
     Indication: Malignant atrophic papulosis
     Dosage: 50 MILLIGRAM, QD
     Route: 065
  18. ASPIRIN [Suspect]
     Active Substance: ASPIRIN
     Indication: Nervous system disorder
  19. ANIFROLUMAB [Suspect]
     Active Substance: ANIFROLUMAB
     Indication: Malignant atrophic papulosis
     Dosage: 200 MILLIGRAM, EVERY 4 WEEKS
     Route: 042
  20. ANIFROLUMAB [Suspect]
     Active Substance: ANIFROLUMAB
     Indication: Nervous system disorder
     Dosage: 150 MILLIGRAM, EVERY 4 WEEKS
     Route: 042
  21. MITOMYCIN [Suspect]
     Active Substance: MITOMYCIN
     Indication: Glaucoma
     Dosage: UNK
     Route: 065
  22. MITOMYCIN [Suspect]
     Active Substance: MITOMYCIN
     Indication: Optic atrophy

REACTIONS (2)
  - Drug ineffective for unapproved indication [Unknown]
  - Off label use [Unknown]
